FAERS Safety Report 23329562 (Version 1)
Quarter: 2023Q4

REPORT INFORMATION
  Report Type: Spontaneous
  Country: US (occurrence: US)
  Receive Date: 20231222
  Receipt Date: 20231222
  Transmission Date: 20240110
  Serious: Yes (Other)
  Sender: FDA-Public Use
  Company Number: US-BRISTOL-MYERS SQUIBB COMPANY-2023-185107

PATIENT
  Age: 76 Year
  Sex: Female

DRUGS (1)
  1. POMALYST [Suspect]
     Active Substance: POMALIDOMIDE
     Indication: Plasma cell myeloma
     Dosage: TOME 1 CAPSULA POR VIA ORAL DURANTE 21 DIAS Y 7 DIAS DE DESCANSO
     Route: 048
     Dates: start: 20231023

REACTIONS (1)
  - Chest pain [Recovered/Resolved]
